FAERS Safety Report 5878450-6 (Version None)
Quarter: 2008Q3

REPORT INFORMATION
  Report Type: 
  Country: None (occurrence: None)
  Receive Date: 20080911
  Receipt Date: 20071001
  Transmission Date: 20090109
  Serious: No
  Sender: FDA-Public Use
  Company Number: US-AMGEN-KDL245616

PATIENT
  Sex: Female

DRUGS (3)
  1. NEUPOGEN [Suspect]
     Indication: NEUTROPENIA
     Dates: start: 20030101, end: 20040401
  2. RIBAVIRIN [Concomitant]
  3. PEGASYS [Concomitant]

REACTIONS (7)
  - BONE PAIN [None]
  - FIBROMYALGIA [None]
  - IMPAIRED GASTRIC EMPTYING [None]
  - MYALGIA [None]
  - PAIN [None]
  - SENSATION OF PRESSURE [None]
  - WHITE BLOOD CELL COUNT DECREASED [None]
